FAERS Safety Report 8546340-6 (Version None)
Quarter: 2012Q3

REPORT INFORMATION
  Report Type: 
  Country: None (occurrence: None)
  Receive Date: 20120727
  Receipt Date: 20111219
  Transmission Date: 20120928
  Serious: No
  Sender: FDA-Public Use
  Company Number: US-ASTRAZENECA-2011SE76633

PATIENT
  Age: 38 Year
  Sex: Female
  Weight: 75.7 kg

DRUGS (3)
  1. WELLBUTRIN [Concomitant]
     Indication: DEPRESSION
  2. SEROQUEL [Suspect]
     Indication: SLEEP DISORDER
     Route: 048
  3. ZOLOFT [Concomitant]
     Indication: DEPRESSION

REACTIONS (2)
  - INSOMNIA [None]
  - DRUG DOSE OMISSION [None]
